FAERS Safety Report 7934520-X (Version None)
Quarter: 2011Q4

REPORT INFORMATION
  Report Type: 
  Country: None (occurrence: None)
  Receive Date: 20111122
  Receipt Date: 20111104
  Transmission Date: 20120403
  Serious: Yes (Hospitalization)
  Sender: FDA-Public Use
  Company Number: KR-AMGEN-KORSP2011056204

PATIENT
  Age: 27 Year

DRUGS (17)
  1. TORSEM [Concomitant]
     Dosage: UNCERTAINTY
     Route: 065
     Dates: start: 20110811, end: 20111010
  2. MULTI-VITAMINS [Concomitant]
     Dosage: UNCERTAINTY
     Route: 065
     Dates: start: 20110811, end: 20111010
  3. MULTI-VITAMINS [Concomitant]
     Dosage: UNCERTAINTY
     Route: 065
     Dates: start: 20110811, end: 20111010
  4. WELCON [Concomitant]
     Dosage: UNCERTAINTY
     Route: 065
     Dates: start: 20110811, end: 20111010
  5. CINACALCET HYDROCHLORIDE [Suspect]
     Dosage: UNCERTAINTY
     Route: 048
     Dates: start: 20110811, end: 20111010
  6. TORSEM [Concomitant]
     Dosage: UNK
     Dates: start: 20110811, end: 20111010
  7. OLMESARTAN MEDOXOMIL [Concomitant]
     Dosage: UNCERTAINTY
     Route: 065
     Dates: start: 20110811, end: 20111010
  8. CALCIUM CARBONATE [Concomitant]
     Dosage: UNK
     Dates: start: 20110811, end: 20111010
  9. WELCON [Concomitant]
     Dosage: UNK
     Dates: start: 20110811, end: 20111010
  10. CALCIUM CARBONATE [Concomitant]
     Dosage: UNCERTAINTY
     Route: 065
     Dates: start: 20110811, end: 20111010
  11. MULTI-VITAMINS [Concomitant]
     Dosage: UNCERTAINTY
     Route: 065
     Dates: start: 20110811, end: 20111010
  12. CINACALCET HYDROCHLORIDE [Suspect]
     Indication: HYPERPARATHYROIDISM SECONDARY
     Dosage: UNK
     Route: 048
     Dates: start: 20110811, end: 20111010
  13. WELCON [Concomitant]
     Dosage: UNCERTAINTY
     Route: 065
     Dates: start: 20110811, end: 20111010
  14. OLMESARTAN MEDOXOMIL [Concomitant]
     Dosage: UNK
     Dates: start: 20110811, end: 20111010
  15. ALLOPURINOL [Concomitant]
     Dosage: UNK
     Dates: start: 20110811, end: 20111010
  16. ALLOPURINOL [Concomitant]
     Dosage: UNCERTAINTY
     Route: 065
     Dates: start: 20110811, end: 20111010
  17. FEROBA [Concomitant]
     Dosage: UNK
     Dates: start: 20110811, end: 20111010

REACTIONS (1)
  - LOCALISED INFECTION [None]
